FAERS Safety Report 9170826 (Version 1)
Quarter: 2013Q1

REPORT INFORMATION
  Report Type: Spontaneous
  Country: IR (occurrence: None)
  Receive Date: 20130311
  Receipt Date: 20130311
  Transmission Date: 20140127
  Serious: Yes (Other)
  Sender: FDA-Public Use
  Company Number: FK201300719

PATIENT
  Age: 34 Year
  Sex: Female

DRUGS (3)
  1. METHYLPREDNISOLONE [Suspect]
     Indication: PANCREAS TRANSPLANT REJECTION
     Route: 042
  2. MYCOPHENOLATE MOFETIL (MYCOPHENOLATE MOFETIL) [Concomitant]
  3. TACROLIMUS (TACROLIMUS) [Concomitant]

REACTIONS (4)
  - Diabetic ketoacidosis [None]
  - Metabolic acidosis [None]
  - Metabolic alkalosis [None]
  - Respiratory alkalosis [None]
